FAERS Safety Report 15276842 (Version 1)
Quarter: 2018Q3

REPORT INFORMATION
  Report Type: Spontaneous
  Country: US (occurrence: US)
  Receive Date: 20180729
  Receipt Date: 20180729
  Transmission Date: 20181010
  Serious: Yes (Disabling)
  Sender: FDA-Public Use
  Company Number: None

PATIENT
  Age: 58 Year
  Sex: Female
  Weight: 60.75 kg

DRUGS (3)
  1. VITAMIN C [Concomitant]
     Active Substance: ASCORBIC ACID
  2. MAGNEVIST [Suspect]
     Active Substance: GADOPENTETATE DIMEGLUMINE
     Indication: NEUROPATHY PERIPHERAL
     Dosage: ?          QUANTITY:12 INJECTION(S);OTHER FREQUENCY:WITH EACH MRI;?
     Route: 042
     Dates: start: 19960905, end: 20161024
  3. VITAMIN D3 [Concomitant]
     Active Substance: CHOLECALCIFEROL

REACTIONS (13)
  - Muscle spasms [None]
  - Cognitive disorder [None]
  - Gadolinium deposition disease [None]
  - Hypoaesthesia [None]
  - Paraesthesia [None]
  - Asthenia [None]
  - Neuropathy peripheral [None]
  - Tendon pain [None]
  - Headache [None]
  - Pain [None]
  - Musculoskeletal stiffness [None]
  - Alopecia [None]
  - Loss of personal independence in daily activities [None]

NARRATIVE: CASE EVENT DATE: 20060815
